FAERS Safety Report 4549213-9 (Version None)
Quarter: 2005Q1

REPORT INFORMATION
  Report Type: 
  Country: None (occurrence: None)
  Receive Date: 20041230
  Receipt Date: 20040517
  Transmission Date: 20050727
  Serious: No
  Sender: FDA-Public Use
  Company Number: 04-05-0720

PATIENT
  Age: 38 Year
  Sex: Male
  Weight: 100.6985 kg

DRUGS (4)
  1. CLOZAPINE [Suspect]
     Indication: BIPOLAR DISORDER
     Dosage: 25-300MG BID ORAL
     Route: 048
     Dates: start: 20040501
  2. CLOZAPINE [Suspect]
     Indication: SCHIZOAFFECTIVE DISORDER
     Dosage: 25-300MG BID ORAL
     Route: 048
     Dates: start: 20040501
  3. SEROQUEL [Concomitant]
  4. KLONOPIN [Concomitant]

REACTIONS (1)
  - HYPERTENSION [None]
